FAERS Safety Report 4845869-1 (Version None)
Quarter: 2005Q4

REPORT INFORMATION
  Report Type: 
  Country: None (occurrence: None)
  Receive Date: 20051201
  Receipt Date: 20051116
  Transmission Date: 20060501
  Serious: Yes (Life-Threatening, Other)
  Sender: FDA-Public Use
  Company Number: 2005BL006926

PATIENT
  Age: 42 Year
  Sex: Female
  Weight: 85 kg

DRUGS (2)
  1. MINIMS PROXYMETACAINE 0.5% (PROXYMETACAINE) [Suspect]
     Indication: ANAESTHESIA
     Dosage: 1 DROP; ONCE A DAY; OPHTHALMIC
     Route: 047
     Dates: start: 20050906, end: 20050906
  2. MINIMS FLUORESCEIN SODIUM 1% (FLUORESCEIN SODIUM) [Suspect]
     Indication: INTRAOCULAR PRESSURE TEST
     Dosage: OPHTHALMIC
     Route: 047

REACTIONS (1)
  - ANAPHYLACTIC REACTION [None]
